FAERS Safety Report 23493610 (Version 1)
Quarter: 2024Q1

REPORT INFORMATION
  Report Type: Spontaneous
  Country: US (occurrence: None)
  Receive Date: 20240206
  Receipt Date: 20240206
  Transmission Date: 20240409
  Serious: Yes (Death)
  Sender: FDA-Public Use
  Company Number: None

PATIENT
  Age: 85 Year
  Sex: Female

DRUGS (2)
  1. POMALYST [Suspect]
     Active Substance: POMALIDOMIDE
     Indication: Plasma cell myeloma
     Dosage: 2MH QD OTSL
     Route: 048
     Dates: start: 20230911, end: 20231228
  2. DEXAMETHASONE [Suspect]
     Active Substance: DEXAMETHASONE

REACTIONS (5)
  - Cerebral infarction [None]
  - Thalamic infarction [None]
  - Ischaemic stroke [None]
  - Transient ischaemic attack [None]
  - Therapy cessation [None]

NARRATIVE: CASE EVENT DATE: 20240103
